FAERS Safety Report 12520664 (Version 1)
Quarter: 2016Q2

REPORT INFORMATION
  Report Type: Spontaneous
  Country: US (occurrence: None)
  Receive Date: 20160630
  Receipt Date: 20160630
  Transmission Date: 20160815
  Serious: Yes (Disabling, Other)
  Sender: FDA-Public Use
  Company Number: None

PATIENT
  Age: 61 Year
  Sex: Female
  Weight: 81.65 kg

DRUGS (5)
  1. DIOVAN [Concomitant]
     Active Substance: VALSARTAN
  2. ALEVE [Concomitant]
     Active Substance: NAPROXEN SODIUM
  3. METHYLPREDNISOLENE 4 MG MEDCO HEALTH [Suspect]
     Active Substance: METHYLPREDNISOLONE
     Indication: SINUSITIS
     Dosage: METHYLPREDNISOLENE 21 TABLET(S)?TAKEN BY MOUTH
     Route: 048
     Dates: start: 20150429, end: 20150510
  4. XANAX [Concomitant]
     Active Substance: ALPRAZOLAM
  5. MULTIVITAMIN [Concomitant]
     Active Substance: VITAMINS

REACTIONS (1)
  - Blood glucose increased [None]

NARRATIVE: CASE EVENT DATE: 20150501
